FAERS Safety Report 10659867 (Version 1)
Quarter: 2014Q4

REPORT INFORMATION
  Report Type: Spontaneous
  Country: US (occurrence: US)
  Receive Date: 20141217
  Receipt Date: 20141217
  Transmission Date: 20150529
  Serious: No
  Sender: FDA-Public Use
  Company Number: US-GLAXOSMITHKLINE-A1079471A

PATIENT

DRUGS (18)
  1. GABAPENTIN. [Concomitant]
     Active Substance: GABAPENTIN
  2. CLOPIDOGREL [Concomitant]
     Active Substance: CLOPIDOGREL BISULFATE
  3. FLUOXETINE [Concomitant]
     Active Substance: FLUOXETINE\FLUOXETINE HYDROCHLORIDE
  4. DIPHENOXYLATE/ATROPINE [Concomitant]
     Active Substance: ATROPINE\DIPHENOXYLATE
  5. TRIAZOLAM. [Concomitant]
     Active Substance: TRIAZOLAM
  6. LORAZEPAM. [Concomitant]
     Active Substance: LORAZEPAM
  7. DOXORUBICIN [Concomitant]
     Active Substance: DOXORUBICIN
  8. PHENAZOPYRIDINE. [Concomitant]
     Active Substance: PHENAZOPYRIDINE
  9. NITROSTAT [Concomitant]
     Active Substance: NITROGLYCERIN
  10. CLOTRIMAZOLE TROCHE [Concomitant]
     Active Substance: CLOTRIMAZOLE
  11. VOTRIENT [Suspect]
     Active Substance: PAZOPANIB HYDROCHLORIDE
     Indication: RENAL CANCER
     Dosage: 200 MG, UNKNOWN DOSING
     Route: 065
     Dates: start: 20130115
  12. GABAPENTIN. [Concomitant]
     Active Substance: GABAPENTIN
  13. OMEPRAZOLE. [Concomitant]
     Active Substance: OMEPRAZOLE
  14. IBUPROFEN. [Concomitant]
     Active Substance: IBUPROFEN
  15. ONDANSETRON [Concomitant]
     Active Substance: ONDANSETRON
  16. ASPIRIN. [Concomitant]
     Active Substance: ASPIRIN
  17. EMEND [Concomitant]
     Active Substance: APREPITANT
  18. SIMVASTATIN. [Concomitant]
     Active Substance: SIMVASTATIN

REACTIONS (2)
  - Dysgeusia [Unknown]
  - Fatigue [Unknown]
